FAERS Safety Report 21548837 (Version 1)
Quarter: 2022Q4

REPORT INFORMATION
  Report Type: Spontaneous
  Country: NL (occurrence: NL)
  Receive Date: 20221103
  Receipt Date: 20221103
  Transmission Date: 20230112
  Serious: Yes (Other)
  Sender: FDA-Public Use
  Company Number: None

PATIENT
  Age: 47 Year
  Sex: Male

DRUGS (2)
  1. AZATHIOPRINE [Suspect]
     Active Substance: AZATHIOPRINE
     Indication: Product used for unknown indication
     Dosage: 175 MG, QD
     Route: 065
  2. PREDNISOLONE [Suspect]
     Active Substance: PREDNISOLONE
     Indication: Product used for unknown indication
     Dosage: 10 MG, QD
     Route: 065

REACTIONS (1)
  - Squamous cell carcinoma of skin [Not Recovered/Not Resolved]

NARRATIVE: CASE EVENT DATE: 20070101
